FAERS Safety Report 6231626-0 (Version None)
Quarter: 2009Q2

REPORT INFORMATION
  Report Type: 
  Country: None (occurrence: None)
  Receive Date: 20090616
  Receipt Date: 20090609
  Transmission Date: 20091009
  Serious: Yes (Hospitalization)
  Sender: FDA-Public Use
  Company Number: NL-BAYER-200922682GPV

PATIENT
  Age: 5 Year
  Sex: Male
  Weight: 22 kg

DRUGS (9)
  1. CIPROFLOXACIN HCL [Suspect]
     Indication: INFECTION PROPHYLAXIS
     Dosage: UNIT DOSE: 250 MG
     Route: 048
     Dates: start: 20090505, end: 20090519
  2. VINCRISTINE SULFATE [Suspect]
     Indication: ACUTE LYMPHOCYTIC LEUKAEMIA
     Route: 042
     Dates: start: 20090512
  3. VINCRISTINE SULFATE [Suspect]
     Dosage: 2 MG/M2 NOS SINCE 16 WEEKS
     Route: 042
     Dates: start: 20081216
  4. TRISPORAL [Concomitant]
     Indication: INFECTION PROPHYLAXIS
     Dosage: UNIT DOSE: 130 MG
     Route: 048
     Dates: start: 20090505
  5. DOXORUBICIN HCL [Concomitant]
     Indication: ACUTE LYMPHOCYTIC LEUKAEMIA
     Route: 042
     Dates: start: 20090512, end: 20090512
  6. PARONAL [Concomitant]
     Indication: ACUTE LYMPHOCYTIC LEUKAEMIA
     Route: 065
     Dates: start: 20090512, end: 20090512
  7. DEXAMETHASONE [Concomitant]
     Indication: ACUTE LYMPHOCYTIC LEUKAEMIA
     Dosage: UNIT DOSE: 1.7 MG
     Route: 048
     Dates: start: 20090512, end: 20090517
  8. PURINETHOL [Concomitant]
     Indication: ACUTE LYMPHOCYTIC LEUKAEMIA
     Route: 048
     Dates: start: 20090512, end: 20090519
  9. AMITRIPTLINE HYDROCHLORIDE TAB [Concomitant]
     Indication: DRUG USE FOR UNKNOWN INDICATION
     Dosage: UNIT DOSE: 5 MG
     Route: 048
     Dates: start: 20090514

REACTIONS (7)
  - ARTHRALGIA [None]
  - CONSTIPATION [None]
  - FLATULENCE [None]
  - LIP BLISTER [None]
  - OROPHARYNGEAL BLISTERING [None]
  - RASH [None]
  - STOMATITIS [None]
